FAERS Safety Report 12098824 (Version 1)
Quarter: 2016Q1

REPORT INFORMATION
  Report Type: Spontaneous
  Country: US (occurrence: US)
  Receive Date: 20160222
  Receipt Date: 20160222
  Transmission Date: 20160526
  Serious: No
  Sender: FDA-Public Use
  Company Number: US-ASTRAZENECA-2016SE15125

PATIENT
  Sex: Female

DRUGS (9)
  1. CYMBALTA [Concomitant]
     Active Substance: DULOXETINE HYDROCHLORIDE
     Indication: FIBROMYALGIA
     Route: 048
  2. HYDROCODONE/ACETAMINOPHEN [Concomitant]
     Active Substance: ACETAMINOPHEN\HYDROCODONE
     Indication: PAIN
     Dosage: 7.5/325 MG AS REQUIRED
     Route: 048
  3. BYDUREON [Suspect]
     Active Substance: EXENATIDE
     Indication: TYPE 2 DIABETES MELLITUS
     Route: 058
     Dates: start: 20151117, end: 20151215
  4. BIEST 50/50 [Concomitant]
     Active Substance: ESTRADIOL\ESTRIOL
     Indication: HYSTERECTOMY
     Dosage: AT NIGHT
     Route: 062
  5. ARMOUR THYROID [Concomitant]
     Active Substance: THYROID, PORCINE
     Route: 048
  6. PROGESTERONE. [Concomitant]
     Active Substance: PROGESTERONE
     Indication: HYSTERECTOMY
     Route: 048
  7. B-12 SHOT [Concomitant]
  8. LISDEXAMFETAMINE MESILATE [Concomitant]
     Active Substance: LISDEXAMFETAMINE DIMESYLATE
     Indication: FIBROMYALGIA
     Route: 048
  9. ETODOLAC. [Concomitant]
     Active Substance: ETODOLAC
     Indication: ANTIINFLAMMATORY THERAPY
     Dosage: 500 MG, AS REQUIRED ABOUT ONCE A WEEK
     Route: 048

REACTIONS (2)
  - Intentional product misuse [Unknown]
  - Injection site mass [Not Recovered/Not Resolved]
